FAERS Safety Report 6170748-X (Version None)
Quarter: 2009Q2

REPORT INFORMATION
  Report Type: 
  Country: None (occurrence: None)
  Receive Date: 20090428
  Receipt Date: 20090420
  Transmission Date: 20091009
  Serious: Yes (Hospitalization, Other)
  Sender: FDA-Public Use
  Company Number: US-ABBOTT-09P-163-0565222-00

PATIENT
  Sex: Female
  Weight: 90.8 kg

DRUGS (2)
  1. HUMIRA [Suspect]
     Indication: PSORIASIS
     Route: 058
     Dates: start: 20081101, end: 20090201
  2. HUMIRA [Suspect]
     Indication: ARTHRALGIA
     Route: 058
     Dates: start: 20090304, end: 20090304

REACTIONS (4)
  - APHASIA [None]
  - CEREBROVASCULAR ACCIDENT [None]
  - DRUG INEFFECTIVE [None]
  - PSORIASIS [None]
